FAERS Safety Report 16845023 (Version 1)
Quarter: 2019Q3

REPORT INFORMATION
  Report Type: Spontaneous
  Country: US (occurrence: US)
  Receive Date: 20190924
  Receipt Date: 20190924
  Transmission Date: 20191005
  Serious: No
  Sender: FDA-Public Use
  Company Number: US-ASSERTIO THERAPEUTICS, INC.-US-2019DEP000099

PATIENT
  Age: 69 Year
  Sex: Female

DRUGS (3)
  1. GRALISE [Suspect]
     Active Substance: GABAPENTIN
     Indication: SPINAL PAIN
     Dosage: TITRATING TO THE 1800 MG DOSE
     Route: 048
     Dates: start: 20190131
  2. FENTANYL. [Concomitant]
     Active Substance: FENTANYL
     Indication: SPINAL PAIN
     Dosage: UNK
  3. LIDOCAINE. [Concomitant]
     Active Substance: LIDOCAINE
     Indication: SPINAL PAIN
     Dosage: UNK

REACTIONS (1)
  - Drug effective for unapproved indication [Unknown]

NARRATIVE: CASE EVENT DATE: 20190131
